FAERS Safety Report 4865470-3 (Version None)
Quarter: 2005Q4

REPORT INFORMATION
  Report Type: 
  Country: None (occurrence: None)
  Receive Date: 20051220
  Receipt Date: 20051206
  Transmission Date: 20060501
  Serious: Yes (Hospitalization)
  Sender: FDA-Public Use
  Company Number: 220131

PATIENT
  Age: 65 Year
  Sex: Female
  Weight: 168 kg

DRUGS (16)
  1. AVASTIN [Suspect]
     Indication: COLORECTAL CANCER METASTATIC
     Dosage: 7.5 MG/M2, DAY1+8/Q3W, INTRAVENOUS
     Route: 042
     Dates: start: 20040913
  2. BLINDED CELECOXIB(CELECOXIB OR COMPARATOR) [Suspect]
     Indication: COLORECTAL CANCER
     Dosage: 37 MG, DAY1+8/Q3W, ORAL
     Route: 048
     Dates: start: 20040913
  3. IRINOTECAN HCL [Suspect]
     Indication: COLORECTAL CANCER
     Dosage: 234 MG, DAY 1+8/Q3W, INTRAVENOUS
     Route: 042
     Dates: start: 20040913
  4. LEUCOVORIN CALCIUM [Suspect]
     Indication: COLORECTAL CANCER
     Dosage: 20 MG/M2, DAY 1+8/Q3W, INTRAVENOUS
     Route: 042
     Dates: start: 20040913
  5. FLUOROURACIL [Suspect]
     Indication: COLORECTAL CANCER
     Dosage: 935 MG, DAY 1+8/Q3W, INTRAVENOUS
     Route: 042
     Dates: start: 20040913
  6. PROTONIX [Concomitant]
  7. ISOSORBIDE MONONITRATE [Concomitant]
  8. ACTONEL [Concomitant]
  9. ACETAMINOPHEN [Concomitant]
  10. COUMADIN [Concomitant]
  11. IRON (IRON NOS) [Concomitant]
  12. CENTRUM SILVER (MINERALS  NOS, MULTIVITAMINS NOS) [Concomitant]
  13. DITROPAN [Concomitant]
  14. IMODIUM [Concomitant]
  15. COMPAZINE [Concomitant]
  16. PROCRIT [Concomitant]

REACTIONS (5)
  - CULTURE URINE POSITIVE [None]
  - DIARRHOEA [None]
  - ESCHERICHIA INFECTION [None]
  - FEBRILE NEUTROPENIA [None]
  - NAUSEA [None]
